FAERS Safety Report 4361026-X (Version None)
Quarter: 2004Q2

REPORT INFORMATION
  Report Type: 
  Country: None (occurrence: None)
  Receive Date: 20040517
  Receipt Date: 20040505
  Transmission Date: 20050107
  Serious: Yes (Other)
  Sender: FDA-Public Use
  Company Number: 105507

PATIENT
  Age: 63 Year
  Sex: Female

DRUGS (4)
  1. HERCEPTIN (TRASTUZUMAB) PWDR + SOLVENT,INFUSION SOLN [Suspect]
     Indication: BREAST CANCER
     Dosage: 4 MG/KG, SINGLE, INTRAVENOUS; 136 MG, 1/WEEK, INTRAVENOUS
     Route: 042
  2. DOCETAXEL (DOCETAXEL) SOLUTION FOR INJECTION [Suspect]
     Indication: BREAST CANCER
     Dosage: 160 MG, SINGLE, INTRAVENOUS
     Route: 042
  3. NAVOBAN (TROPISETRON HYDROCHLORIDE) [Concomitant]
  4. DECADRON [Concomitant]

REACTIONS (3)
  - FEBRILE NEUTROPENIA [None]
  - HEADACHE [None]
  - WHITE BLOOD CELL COUNT DECREASED [None]
